FAERS Safety Report 19129577 (Version 3)
Quarter: 2021Q2

REPORT INFORMATION
  Report Type: Report from Study
  Country: US (occurrence: US)
  Receive Date: 20210413
  Receipt Date: 20210509
  Transmission Date: 20210717
  Serious: Yes (Hospitalization)
  Sender: FDA-Public Use
  Company Number: US-JNJFOC-20210335580

PATIENT
  Age: 67 Year
  Sex: Male
  Weight: 54.5 kg

DRUGS (6)
  1. MACITENTAN [Suspect]
     Active Substance: MACITENTAN
     Indication: PULMONARY ARTERIAL HYPERTENSION
     Route: 048
  2. XARELTO [Concomitant]
     Active Substance: RIVAROXABAN
  3. TADALAFIL. [Concomitant]
     Active Substance: TADALAFIL
  4. OFEV [Concomitant]
     Active Substance: NINTEDANIB
  5. TYVASO [Suspect]
     Active Substance: TREPROSTINIL
     Indication: PRODUCT USED FOR UNKNOWN INDICATION
     Route: 065
  6. METOPROLOL. [Concomitant]
     Active Substance: METOPROLOL

REACTIONS (10)
  - Headache [Unknown]
  - Product dose omission issue [Unknown]
  - Cough [Unknown]
  - Cardiac ventricular scarring [Unknown]
  - Heart rate increased [Unknown]
  - Dizziness [Unknown]
  - Chest pain [Unknown]
  - Ventricular tachycardia [Unknown]
  - Cardiac disorder [Unknown]
  - Vomiting [Unknown]

NARRATIVE: CASE EVENT DATE: 202103
